FAERS Safety Report 15652642 (Version 1)
Quarter: 2018Q4

REPORT INFORMATION
  Report Type: Spontaneous
  Country: US (occurrence: US)
  Receive Date: 20181123
  Receipt Date: 20181123
  Transmission Date: 20190205
  Serious: Yes (Other)
  Sender: FDA-Public Use
  Company Number: US-NOVOPROD-577763

PATIENT
  Age: 81 Year
  Sex: Female
  Weight: 62.59 kg

DRUGS (3)
  1. NOVOLOG [Suspect]
     Active Substance: INSULIN ASPART
     Dosage: 10 U, SINGLE
     Route: 058
     Dates: start: 20171214, end: 20171214
  2. NOVOLOG [Suspect]
     Active Substance: INSULIN ASPART
     Dosage: 40 U, SINGLE
     Route: 058
     Dates: start: 20171215, end: 20171215
  3. NOVOLOG [Suspect]
     Active Substance: INSULIN ASPART
     Indication: TYPE 1 DIABETES MELLITUS
     Dosage: 30 U, QD (APPROXIMATELY)
     Route: 058
     Dates: start: 2015

REACTIONS (3)
  - Product quality issue [Recovered/Resolved]
  - Drug ineffective [Recovered/Resolved]
  - Blood glucose increased [Recovered/Resolved]

NARRATIVE: CASE EVENT DATE: 20171214
